FAERS Safety Report 18972765 (Version 2)
Quarter: 2021Q1

REPORT INFORMATION
  Report Type: Report from Study
  Country: None (occurrence: CO)
  Receive Date: 20210305
  Receipt Date: 20210326
  Transmission Date: 20210420
  Serious: Yes (Hospitalization, Other)
  Sender: FDA-Public Use
  Company Number: CO-ABBVIE-21K-036-3802166-00

PATIENT
  Age: 64 Year
  Sex: Male
  Weight: 85 kg

DRUGS (3)
  1. HUMIRA [Suspect]
     Active Substance: ADALIMUMAB
     Indication: RHEUMATOID ARTHRITIS
     Route: 058
     Dates: end: 20210213
  2. HUMIRA [Suspect]
     Active Substance: ADALIMUMAB
     Indication: RHEUMATOID ARTHRITIS
     Route: 058
     Dates: start: 20110906
  3. ARAVA [Concomitant]
     Active Substance: LEFLUNOMIDE
     Indication: RHEUMATOID ARTHRITIS
     Route: 048
     Dates: end: 202102

REACTIONS (3)
  - Arterial occlusive disease [Recovering/Resolving]
  - Coronary artery disease [Recovering/Resolving]
  - Myocardial infarction [Recovering/Resolving]

NARRATIVE: CASE EVENT DATE: 20210222
